FAERS Safety Report 19728040 (Version 1)
Quarter: 2021Q3

REPORT INFORMATION
  Report Type: Spontaneous
  Country: US (occurrence: US)
  Receive Date: 20210820
  Receipt Date: 20210820
  Transmission Date: 20211014
  Serious: No
  Sender: FDA-Public Use
  Company Number: US-ROCHE-2890399

PATIENT
  Sex: Male
  Weight: 83.9 kg

DRUGS (1)
  1. ACTEMRA [Suspect]
     Active Substance: TOCILIZUMAB
     Indication: COVID-19
     Route: 065

REACTIONS (4)
  - No adverse event [Unknown]
  - Intentional product use issue [Unknown]
  - Off label use [Unknown]
  - Intercepted product storage error [Unknown]
